FAERS Safety Report 20633716 (Version 1)
Quarter: 2022Q1

REPORT INFORMATION
  Report Type: Spontaneous
  Country: SI (occurrence: SI)
  Receive Date: 20220324
  Receipt Date: 20220324
  Transmission Date: 20220423
  Serious: Yes (Other)
  Sender: FDA-Public Use
  Company Number: None

PATIENT
  Age: 61 Year
  Sex: Male

DRUGS (4)
  1. OFEV [Suspect]
     Active Substance: NINTEDANIB
     Indication: Hypersensitivity pneumonitis
     Dates: start: 20210816, end: 20220311
  2. ASPIRIN [Concomitant]
     Active Substance: ASPIRIN
     Indication: Product used for unknown indication
  3. Nalgesin forte 550 MG [Concomitant]
     Indication: Product used for unknown indication
     Dates: start: 20220216
  4. SORVASTA 10MG [Concomitant]
     Indication: Product used for unknown indication

REACTIONS (1)
  - Retinal haemorrhage [Unknown]

NARRATIVE: CASE EVENT DATE: 20220306
